FAERS Safety Report 10061059 (Version 1)
Quarter: 2014Q2

REPORT INFORMATION
  Report Type: Spontaneous
  Country: US (occurrence: US)
  Receive Date: 20140405
  Receipt Date: 20140405
  Transmission Date: 20141212
  Serious: No
  Sender: FDA-Public Use
  Company Number: US-TEVA-473120USA

PATIENT
  Sex: Female
  Weight: 91.25 kg

DRUGS (9)
  1. PROAIR HFA [Suspect]
     Indication: LUNG DISORDER
     Dosage: TWO PUFFS EVERY AM AND CAN REPEAT 4 HOURS LATER IF NEEDED
     Dates: start: 201402
  2. SINGULAIR [Suspect]
  3. CRESTOR [Concomitant]
  4. METOPROLOL [Concomitant]
  5. METFORMIN [Concomitant]
  6. OMEPRAZOLE [Concomitant]
  7. ASPIRIN [Concomitant]
  8. CALCIUM [Concomitant]
  9. VITAMIN D3 [Concomitant]

REACTIONS (8)
  - Spinal pain [Recovering/Resolving]
  - Back pain [Recovering/Resolving]
  - Headache [Unknown]
  - Rhinorrhoea [Unknown]
  - Nasal discharge discolouration [Unknown]
  - Dyspnoea [Unknown]
  - Hair colour changes [Unknown]
  - Dyspnoea [Unknown]
